FAERS Safety Report 25318966 (Version 1)
Quarter: 2025Q2

REPORT INFORMATION
  Report Type: Spontaneous
  Country: ES (occurrence: ES)
  Receive Date: 20250515
  Receipt Date: 20250515
  Transmission Date: 20250717
  Serious: Yes (Hospitalization, Other)
  Sender: Kenvue
  Company Number: None

PATIENT

DRUGS (2)
  1. IBUPROFEN [Suspect]
     Active Substance: IBUPROFEN
     Indication: Pain
     Route: 048
     Dates: start: 20240724, end: 20240828
  2. NAPROXEN SODIUM [Concomitant]
     Active Substance: NAPROXEN SODIUM
     Indication: Pain
     Route: 048
     Dates: start: 20211228, end: 20230724

REACTIONS (1)
  - Acquired haemophilia [Not Recovered/Not Resolved]

NARRATIVE: CASE EVENT DATE: 20240802
